FAERS Safety Report 12207073 (Version 1)
Quarter: 2016Q1

REPORT INFORMATION
  Report Type: Spontaneous
  Country: US (occurrence: None)
  Receive Date: 20160323
  Receipt Date: 20160323
  Transmission Date: 20160526
  Serious: No
  Sender: FDA-Public Use
  Company Number: None

PATIENT
  Age: 78 Year
  Sex: Female
  Weight: 81.65 kg

DRUGS (2)
  1. VITAMIN D [Concomitant]
     Active Substance: CHOLECALCIFEROL
  2. XIFAXAN [Suspect]
     Active Substance: RIFAXIMIN
     Indication: DIARRHOEA
     Dosage: 500 1 TABLET 3 A DAY BY MOUTH
     Route: 048
     Dates: start: 20160105, end: 20160106

REACTIONS (3)
  - Dizziness [None]
  - Presyncope [None]
  - Balance disorder [None]

NARRATIVE: CASE EVENT DATE: 20160106
